FAERS Safety Report 5631088-8 (Version None)
Quarter: 2008Q1

REPORT INFORMATION
  Report Type: 
  Country: None (occurrence: None)
  Receive Date: 20080219
  Receipt Date: 20080211
  Transmission Date: 20080703
  Serious: Yes (Hospitalization, Other)
  Sender: FDA-Public Use
  Company Number: BE-ABBOTT-08P-013-0437660-00

PATIENT
  Sex: Female

DRUGS (6)
  1. HUMIRA [Suspect]
     Indication: RHEUMATOID ARTHRITIS
     Dates: start: 20040909, end: 20070621
  2. HUMIRA [Suspect]
     Dates: start: 20070914
  3. ALLOPURINOL [Concomitant]
     Indication: DRUG USE FOR UNKNOWN INDICATION
  4. COLECALCIFEROL [Concomitant]
     Indication: DRUG USE FOR UNKNOWN INDICATION
  5. BUDESONIDE W/FORMOTEROL FUMARATE [Concomitant]
     Indication: DRUG USE FOR UNKNOWN INDICATION
  6. NASONER [Concomitant]
     Indication: DRUG USE FOR UNKNOWN INDICATION

REACTIONS (12)
  - ABSCESS INTESTINAL [None]
  - BARRETT'S OESOPHAGUS [None]
  - COLITIS [None]
  - CYST [None]
  - DIARRHOEA [None]
  - GASTRITIS HAEMORRHAGIC [None]
  - HEPATIC CIRRHOSIS [None]
  - INTESTINAL GASTRIC METAPLASIA [None]
  - IRON DEFICIENCY ANAEMIA [None]
  - LIVER DISORDER [None]
  - PORTAL HYPERTENSION [None]
  - PROCTITIS [None]
